FAERS Safety Report 9563931 (Version 1)
Quarter: 2013Q3

REPORT INFORMATION
  Report Type: Report from Study
  Country: US (occurrence: US)
  Receive Date: 20130928
  Receipt Date: 20130928
  Transmission Date: 20140515
  Serious: Yes (Hospitalization)
  Sender: FDA-Public Use
  Company Number: US-ROCHE-1282054

PATIENT
  Sex: Male

DRUGS (4)
  1. LUCENTIS [Suspect]
     Indication: EYE HAEMORRHAGE
     Route: 050
     Dates: start: 20130923
  2. LUCENTIS [Suspect]
     Indication: RETINAL SCAR
  3. LORTAB [Concomitant]
     Indication: PAIN
  4. GABAPENTIN [Concomitant]
     Indication: PAIN

REACTIONS (1)
  - Stent placement [Unknown]
